FAERS Safety Report 6041788-6 (Version None)
Quarter: 2009Q1

REPORT INFORMATION
  Report Type: 
  Country: None (occurrence: None)
  Receive Date: 20090116
  Receipt Date: 20090107
  Transmission Date: 20090719
  Serious: Yes (Other)
  Sender: FDA-Public Use
  Company Number: US-AVENTIS-200910261US

PATIENT
  Sex: Male
  Weight: 100.91 kg

DRUGS (4)
  1. LANTUS [Suspect]
     Dosage: DOSE: UNK
  2. LANTUS [Suspect]
  3. PRANDIN                            /01393601/ [Concomitant]
     Dosage: DOSE: UNK
  4. CARDIOVASCULAR SYSTEM DRUGS [Concomitant]

REACTIONS (6)
  - BLOOD GLUCOSE DECREASED [None]
  - BLOOD GLUCOSE FLUCTUATION [None]
  - CATARACT [None]
  - DIABETIC RETINOPATHY [None]
  - GLYCOSYLATED HAEMOGLOBIN INCREASED [None]
  - VISUAL IMPAIRMENT [None]
